FAERS Safety Report 9727836 (Version 1)
Quarter: 2013Q4

REPORT INFORMATION
  Report Type: Report from Study
  Country: GB (occurrence: GB)
  Receive Date: 20131204
  Receipt Date: 20131204
  Transmission Date: 20140711
  Serious: Yes (Death, Other)
  Sender: FDA-Public Use
  Company Number: GB-ROCHE-1312152

PATIENT
  Sex: 0

DRUGS (1)
  1. CAPECITABINE [Suspect]
     Indication: COLORECTAL CANCER
     Route: 065

REACTIONS (5)
  - Gastrointestinal disorder [Fatal]
  - Hepatic failure [Fatal]
  - Cardiac disorder [Fatal]
  - Embolism [Fatal]
  - Palmar-plantar erythrodysaesthesia syndrome [Unknown]
